FAERS Safety Report 23908204 (Version 2)
Quarter: 2024Q2

REPORT INFORMATION
  Report Type: Spontaneous
  Country: CN (occurrence: CN)
  Receive Date: 20240528
  Receipt Date: 20240531
  Transmission Date: 20240716
  Serious: Yes (Other)
  Sender: FDA-Public Use
  Company Number: CN-PFIZER INC-PV202400068528

PATIENT
  Age: 20 Year
  Sex: Male
  Weight: 57 kg

DRUGS (7)
  1. CYTARABINE [Suspect]
     Active Substance: CYTARABINE
     Indication: Acute lymphocytic leukaemia
     Dosage: Q12H
     Route: 041
     Dates: start: 20240507, end: 20240508
  2. METHOTREXATE SODIUM [Suspect]
     Active Substance: METHOTREXATE SODIUM
     Indication: Acute lymphocytic leukaemia
     Dosage: 400 MG, 600 MG, 1000 MG IN 3 DIVIDED DOSES
     Route: 041
     Dates: start: 20240502, end: 20240502
  3. LEUCOVORIN CALCIUM [Suspect]
     Active Substance: LEUCOVORIN CALCIUM
     Indication: Acute lymphocytic leukaemia
     Dosage: Q6H
     Route: 041
     Dates: start: 20240503, end: 20240507
  4. LEUCOVORIN CALCIUM [Suspect]
     Active Substance: LEUCOVORIN CALCIUM
     Dosage: 50 MG, 3X/DAY
     Dates: start: 20240503, end: 20240507
  5. VINDESINE SULFATE [Suspect]
     Active Substance: VINDESINE SULFATE
     Indication: Acute lymphocytic leukaemia
     Dosage: 4 MG, 1X/DAY
     Route: 041
     Dates: start: 20240427, end: 20240427
  6. PREDNISONE ACETATE [Suspect]
     Active Substance: PREDNISONE ACETATE
     Indication: Acute lymphocytic leukaemia
     Dosage: 20 MG, 2X/DAY
     Route: 048
     Dates: start: 20240427, end: 20240503
  7. MAGNESIUM ISOGLYCYRRHIZINATE [Concomitant]
     Active Substance: MAGNESIUM ISOGLYCYRRHIZINATE
     Indication: Hepatobiliary disorder prophylaxis
     Dosage: 40 ML, 1X/DAY
     Route: 041
     Dates: start: 20240502, end: 20240514

REACTIONS (3)
  - Myelosuppression [Recovering/Resolving]
  - Hepatic function abnormal [Recovering/Resolving]
  - Blood lactate dehydrogenase increased [Recovering/Resolving]

NARRATIVE: CASE EVENT DATE: 20240512
